FAERS Safety Report 4576601-7 (Version None)
Quarter: 2005Q1

REPORT INFORMATION
  Report Type: 
  Country: None (occurrence: None)
  Receive Date: 20050127
  Receipt Date: 20040916
  Transmission Date: 20050727
  Serious: No
  Sender: FDA-Public Use
  Company Number: USA041080064

PATIENT
  Age: 16 Year

DRUGS (1)
  1. STRATTERA [Suspect]

REACTIONS (4)
  - ANGER [None]
  - DRUG EFFECT DECREASED [None]
  - IRRITABILITY [None]
  - MOOD SWINGS [None]
